FAERS Safety Report 8530231-0 (Version None)
Quarter: 2012Q3

REPORT INFORMATION
  Report Type: 
  Country: None (occurrence: None)
  Receive Date: 20120723
  Receipt Date: 20120720
  Transmission Date: 20120928
  Serious: Yes (Death, Other)
  Sender: FDA-Public Use
  Company Number: PHHO2012BE002069

PATIENT
  Sex: Female

DRUGS (11)
  1. INDERAL [Concomitant]
     Dosage: 80 MG, QD
     Route: 048
     Dates: start: 20100520
  2. DIPIPERON [Concomitant]
     Dosage: 2 X 4 P/DF
     Route: 048
     Dates: start: 20030101
  3. LETROZOLE [Suspect]
     Dosage: 2.5 MG, DAILY
     Route: 048
     Dates: start: 20101028, end: 20120216
  4. LETROZOLE [Suspect]
     Indication: BREAST CANCER
     Dosage: 2.5 MG, DAILY
     Route: 048
     Dates: start: 20090928, end: 20100628
  5. LETROZOLE [Suspect]
     Dosage: NO TREATMENT RECEIVED
     Dates: start: 20100629, end: 20101027
  6. XANAX [Concomitant]
     Dosage: 0.5 MG, BID
     Route: 048
     Dates: start: 20020101
  7. ZOPICLONE [Concomitant]
     Dosage: QD
     Route: 048
     Dates: start: 20100520
  8. TRAZODONE HCL [Concomitant]
     Dosage: QD
     Route: 048
     Dates: start: 20100520
  9. MOVIPREP [Concomitant]
     Dosage: QD
     Route: 048
     Dates: start: 20100520
  10. CALCIUM CARBONATE [Concomitant]
     Dosage: QD
     Route: 048
     Dates: start: 20040902
  11. CYMBALTA [Concomitant]
     Dosage: 60 MG, UNK
     Route: 048
     Dates: start: 20100520

REACTIONS (3)
  - SUICIDAL IDEATION [None]
  - DEPRESSION [None]
  - EUTHANASIA [None]
